FAERS Safety Report 17979297 (Version 2)
Quarter: 2020Q3

REPORT INFORMATION
  Report Type: Report from Study
  Country: US (occurrence: US)
  Receive Date: 20200703
  Receipt Date: 20200921
  Transmission Date: 20201103
  Serious: Yes (Hospitalization)
  Sender: FDA-Public Use
  Company Number: US-EISAI MEDICAL RESEARCH-EC-2019-055396

PATIENT
  Age: 79 Year
  Sex: Female
  Weight: 79.8 kg

DRUGS (25)
  1. VITAMIN D [Concomitant]
     Active Substance: VITAMIN D NOS
  2. TRAMADOL. [Concomitant]
     Active Substance: TRAMADOL
  3. SERTRALINE [Concomitant]
     Active Substance: SERTRALINE HYDROCHLORIDE
  4. LENVIMA [Suspect]
     Active Substance: LENVATINIB
     Indication: THYROID CANCER
     Route: 048
     Dates: start: 20190416, end: 2020
  5. LENVIMA [Suspect]
     Active Substance: LENVATINIB
     Route: 048
     Dates: start: 2020
  6. COLCHICINE. [Concomitant]
     Active Substance: COLCHICINE
  7. IBUPROFEN. [Concomitant]
     Active Substance: IBUPROFEN
  8. MECLIZINE [Concomitant]
     Active Substance: MECLIZINE HYDROCHLORIDE
  9. KLOR?CON [Concomitant]
     Active Substance: POTASSIUM CHLORIDE
  10. FUROSEMIDE. [Concomitant]
     Active Substance: FUROSEMIDE
  11. HYDROCHLOROTHIAZIDE. [Concomitant]
     Active Substance: HYDROCHLOROTHIAZIDE
  12. METFORMIN [Concomitant]
     Active Substance: METFORMIN HYDROCHLORIDE
  13. METAMUCIL [Concomitant]
     Active Substance: PLANTAGO SEED
  14. ZYRTEC [Concomitant]
     Active Substance: CETIRIZINE HYDROCHLORIDE
  15. AMLODIPINE [Concomitant]
     Active Substance: AMLODIPINE BESYLATE
  16. PRAVASTATIN. [Concomitant]
     Active Substance: PRAVASTATIN
  17. ATENOLOL. [Concomitant]
     Active Substance: ATENOLOL
  18. MUCINEX D [Concomitant]
     Active Substance: GUAIFENESIN\PSEUDOEPHEDRINE HYDROCHLORIDE
  19. LASIX [Concomitant]
     Active Substance: FUROSEMIDE
  20. LEVOCETIRIZINE DIHYDROCHLORIDE. [Concomitant]
     Active Substance: LEVOCETIRIZINE DIHYDROCHLORIDE
  21. GLIPIZIDE. [Concomitant]
     Active Substance: GLIPIZIDE
  22. ASPIRIN. [Concomitant]
     Active Substance: ASPIRIN
  23. CENTRUM SILVER [Concomitant]
     Active Substance: MINERALS\VITAMINS
  24. CHOLECALCIFEROL [Concomitant]
     Active Substance: CHOLECALCIFEROL
  25. SYNTHROID [Concomitant]
     Active Substance: LEVOTHYROXINE SODIUM

REACTIONS (21)
  - Nausea [Recovering/Resolving]
  - Dehydration [Unknown]
  - Malaise [Recovering/Resolving]
  - Fatigue [Recovering/Resolving]
  - Vomiting [Unknown]
  - Diarrhoea [Recovered/Resolved]
  - Blood pressure increased [Unknown]
  - Decreased appetite [Recovered/Resolved]
  - Oral pain [Recovering/Resolving]
  - Stomatitis [Unknown]
  - Cholelithiasis [Unknown]
  - Weight decreased [Unknown]
  - Large intestine polyp [Unknown]
  - Hypersensitivity [Unknown]
  - Headache [Unknown]
  - Cough [Unknown]
  - Abdominal tenderness [Unknown]
  - Dysphonia [Unknown]
  - Lip pain [Unknown]
  - Dizziness [Recovering/Resolving]
  - Taste disorder [Unknown]

NARRATIVE: CASE EVENT DATE: 2019
